FAERS Safety Report 8623750-X (Version None)
Quarter: 2012Q3

REPORT INFORMATION
  Report Type: 
  Country: None (occurrence: None)
  Receive Date: 20120827
  Receipt Date: 20120819
  Transmission Date: 20120928
  Serious: No
  Sender: FDA-Public Use
  Company Number: US-BAYER-2012-086497

PATIENT

DRUGS (2)
  1. ALEVE (CAPLET) [Suspect]
     Indication: EAR PAIN
  2. ALEVE (CAPLET) [Suspect]
     Indication: HEADACHE
     Route: 048

REACTIONS (1)
  - EAR PAIN [None]
